FAERS Safety Report 14457164 (Version 1)
Quarter: 2018Q1

REPORT INFORMATION
  Report Type: Spontaneous
  Country: US (occurrence: US)
  Receive Date: 20180127
  Receipt Date: 20180127
  Transmission Date: 20180509
  Serious: No
  Sender: FDA-Public Use
  Company Number: None

PATIENT
  Age: 63 Year
  Sex: Male

DRUGS (1)
  1. LUPRON DEPOT [Suspect]
     Active Substance: LEUPROLIDE ACETATE
     Indication: PROSTATE CANCER
     Dosage: 7.5 MG EVERY 28 DAYS, INTRAMUSCULAR
     Route: 030
     Dates: start: 20170202

REACTIONS (4)
  - Myalgia [None]
  - Fatigue [None]
  - Hot flush [None]
  - Asthenia [None]

NARRATIVE: CASE EVENT DATE: 20170202
